FAERS Safety Report 21673470 (Version 1)
Quarter: 2022Q4

REPORT INFORMATION
  Report Type: Spontaneous
  Country: AU (occurrence: AU)
  Receive Date: 20221202
  Receipt Date: 20221202
  Transmission Date: 20230113
  Serious: Yes (Other)
  Sender: FDA-Public Use
  Company Number: AU-GENERIC HEALTH PTY. LTD.-2022-14008

PATIENT
  Age: 16 Year
  Sex: Male

DRUGS (7)
  1. RISPERIDONE [Suspect]
     Active Substance: RISPERIDONE
     Indication: Autism spectrum disorder
     Dosage: 2 MG, QD
     Route: 065
  2. RISPERIDONE [Suspect]
     Active Substance: RISPERIDONE
     Dosage: UNK, DOSE REDUCED
     Route: 065
  3. LURASIDONE HYDROCHLORIDE [Suspect]
     Active Substance: LURASIDONE HYDROCHLORIDE
     Indication: Autism spectrum disorder
     Dosage: 20 MG, QD
     Route: 065
  4. LURASIDONE HYDROCHLORIDE [Suspect]
     Active Substance: LURASIDONE HYDROCHLORIDE
     Dosage: 60 MG, QD, INCREASED FORTNIGHTLY
     Route: 065
  5. TOPIRAMATE [Suspect]
     Active Substance: TOPIRAMATE
     Indication: Autism spectrum disorder
     Dosage: UNK
     Route: 065
  6. FLUOXETINE [Suspect]
     Active Substance: FLUOXETINE HYDROCHLORIDE
     Indication: Autism spectrum disorder
     Dosage: UNK
     Route: 065
  7. MELATONIN [Suspect]
     Active Substance: MELATONIN
     Indication: Autism spectrum disorder
     Dosage: UNK
     Route: 065

REACTIONS (4)
  - Drug ineffective for unapproved indication [Unknown]
  - Weight increased [Unknown]
  - Off label use [Unknown]
  - Rebound effect [Unknown]
